FAERS Safety Report 25802370 (Version 1)
Quarter: 2025Q3

REPORT INFORMATION
  Report Type: Spontaneous
  Country: US (occurrence: US)
  Receive Date: 20250915
  Receipt Date: 20250915
  Transmission Date: 20251020
  Serious: No
  Sender: MYLAN
  Company Number: US-MYLANLABS-2025M1076232

PATIENT
  Sex: Female

DRUGS (40)
  1. LYRICA [Suspect]
     Active Substance: PREGABALIN
     Indication: Product used for unknown indication
  2. LYRICA [Suspect]
     Active Substance: PREGABALIN
     Route: 065
  3. LYRICA [Suspect]
     Active Substance: PREGABALIN
     Route: 065
  4. LYRICA [Suspect]
     Active Substance: PREGABALIN
  5. ALBUTEROL SULFATE [Concomitant]
     Active Substance: ALBUTEROL SULFATE
  6. ALBUTEROL SULFATE [Concomitant]
     Active Substance: ALBUTEROL SULFATE
     Route: 065
  7. ALBUTEROL SULFATE [Concomitant]
     Active Substance: ALBUTEROL SULFATE
     Route: 065
  8. ALBUTEROL SULFATE [Concomitant]
     Active Substance: ALBUTEROL SULFATE
  9. PROMETHAZINE [Concomitant]
     Active Substance: PROMETHAZINE HYDROCHLORIDE
  10. PROMETHAZINE [Concomitant]
     Active Substance: PROMETHAZINE HYDROCHLORIDE
     Route: 065
  11. PROMETHAZINE [Concomitant]
     Active Substance: PROMETHAZINE HYDROCHLORIDE
     Route: 065
  12. PROMETHAZINE [Concomitant]
     Active Substance: PROMETHAZINE HYDROCHLORIDE
  13. BUPROPION [Concomitant]
     Active Substance: BUPROPION
  14. BUPROPION [Concomitant]
     Active Substance: BUPROPION
     Route: 065
  15. BUPROPION [Concomitant]
     Active Substance: BUPROPION
     Route: 065
  16. BUPROPION [Concomitant]
     Active Substance: BUPROPION
  17. XANAX [Concomitant]
     Active Substance: ALPRAZOLAM
  18. XANAX [Concomitant]
     Active Substance: ALPRAZOLAM
     Route: 065
  19. XANAX [Concomitant]
     Active Substance: ALPRAZOLAM
     Route: 065
  20. XANAX [Concomitant]
     Active Substance: ALPRAZOLAM
  21. NEURONTIN [Concomitant]
     Active Substance: GABAPENTIN
  22. NEURONTIN [Concomitant]
     Active Substance: GABAPENTIN
     Route: 065
  23. NEURONTIN [Concomitant]
     Active Substance: GABAPENTIN
     Route: 065
  24. NEURONTIN [Concomitant]
     Active Substance: GABAPENTIN
  25. CELEBREX [Concomitant]
     Active Substance: CELECOXIB
  26. CELEBREX [Concomitant]
     Active Substance: CELECOXIB
     Route: 065
  27. CELEBREX [Concomitant]
     Active Substance: CELECOXIB
     Route: 065
  28. CELEBREX [Concomitant]
     Active Substance: CELECOXIB
  29. SOMA [Concomitant]
     Active Substance: CARISOPRODOL
  30. SOMA [Concomitant]
     Active Substance: CARISOPRODOL
     Route: 065
  31. SOMA [Concomitant]
     Active Substance: CARISOPRODOL
     Route: 065
  32. SOMA [Concomitant]
     Active Substance: CARISOPRODOL
  33. TIZANIDINE [Concomitant]
     Active Substance: TIZANIDINE
  34. TIZANIDINE [Concomitant]
     Active Substance: TIZANIDINE
     Route: 065
  35. TIZANIDINE [Concomitant]
     Active Substance: TIZANIDINE
     Route: 065
  36. TIZANIDINE [Concomitant]
     Active Substance: TIZANIDINE
  37. MODAFINIL [Concomitant]
     Active Substance: MODAFINIL
  38. MODAFINIL [Concomitant]
     Active Substance: MODAFINIL
     Route: 065
  39. MODAFINIL [Concomitant]
     Active Substance: MODAFINIL
     Route: 065
  40. MODAFINIL [Concomitant]
     Active Substance: MODAFINIL

REACTIONS (2)
  - Wheezing [Not Recovered/Not Resolved]
  - Drug hypersensitivity [Not Recovered/Not Resolved]

NARRATIVE: CASE EVENT DATE: 20190101
